FAERS Safety Report 10689367 (Version 1)
Quarter: 2015Q1

REPORT INFORMATION
  Report Type: Spontaneous
  Country: US (occurrence: US)
  Receive Date: 20150105
  Receipt Date: 20150105
  Transmission Date: 20150720
  Serious: No
  Sender: FDA-Public Use
  Company Number: US-009507513-1412USA013867

PATIENT
  Age: 38 Year
  Sex: Female
  Weight: 61.68 kg

DRUGS (1)
  1. IMPLANON [Suspect]
     Active Substance: ETONOGESTREL
     Indication: CONTRACEPTION
     Dosage: UNK
     Route: 059
     Dates: start: 20140812

REACTIONS (4)
  - Dizziness [Unknown]
  - Headache [Unknown]
  - Vomiting [Unknown]
  - Adverse event [Unknown]

NARRATIVE: CASE EVENT DATE: 20141116
